FAERS Safety Report 9559471 (Version 1)
Quarter: 2013Q3

REPORT INFORMATION
  Report Type: Spontaneous
  Country: MX (occurrence: MX)
  Receive Date: 20130927
  Receipt Date: 20130927
  Transmission Date: 20140515
  Serious: Yes (Hospitalization)
  Sender: FDA-Public Use
  Company Number: MX-ACCORD-019538

PATIENT
  Age: 22 Year
  Sex: Female

DRUGS (3)
  1. LEVETIRACETAM [Suspect]
     Indication: CONVULSION
  2. LACOSAMIDE [Suspect]
     Indication: CONVULSION
  3. ALPRAZOLAM [Concomitant]
     Indication: INSOMNIA

REACTIONS (3)
  - Hepatitis acute [Recovering/Resolving]
  - Renal failure acute [Recovering/Resolving]
  - Multi-organ failure [Unknown]
